FAERS Safety Report 6825598-5 (Version None)
Quarter: 2010Q3

REPORT INFORMATION
  Report Type: 
  Country: None (occurrence: None)
  Receive Date: 20100708
  Receipt Date: 20070213
  Transmission Date: 20110219
  Serious: No
  Sender: FDA-Public Use
  Company Number: US-PFIZER INC-2006151930

PATIENT
  Sex: Female
  Weight: 59.87 kg

DRUGS (7)
  1. CHANTIX [Suspect]
     Indication: SMOKING CESSATION THERAPY
     Route: 048
     Dates: start: 20061121, end: 20061124
  2. IBANDRONATE SODIUM [Concomitant]
  3. SPIRIVA [Concomitant]
  4. XANAX [Concomitant]
  5. CRESTOR [Concomitant]
  6. TRICOR [Concomitant]
  7. NEXIUM [Concomitant]

REACTIONS (4)
  - DEHYDRATION [None]
  - TREMOR [None]
  - URINARY TRACT INFECTION [None]
  - VOMITING [None]
